FAERS Safety Report 16861656 (Version 2)
Quarter: 2020Q3

REPORT INFORMATION
  Report Type: Spontaneous
  Country: US (occurrence: US)
  Receive Date: 20190927
  Receipt Date: 20200724
  Transmission Date: 20201102
  Serious: No
  Sender: FDA-Public Use
  Company Number: US-BIOGEN-2019BI00773738

PATIENT
  Sex: Female

DRUGS (1)
  1. TYSABRI [Suspect]
     Active Substance: NATALIZUMAB
     Indication: MULTIPLE SCLEROSIS
     Route: 065
     Dates: start: 20070322, end: 20190515

REACTIONS (4)
  - Central nervous system lesion [Unknown]
  - Multiple sclerosis [Unknown]
  - Prescribed underdose [Unknown]
  - Mobility decreased [Unknown]
